FAERS Safety Report 4577413-0 (Version None)
Quarter: 2005Q1

REPORT INFORMATION
  Report Type: 
  Country: None (occurrence: None)
  Receive Date: 20050208
  Receipt Date: 20050202
  Transmission Date: 20050727
  Serious: Yes (Hospitalization)
  Sender: FDA-Public Use
  Company Number: HQWYE072403FEB05

PATIENT

DRUGS (4)
  1. TAZOCIN (PIPERACILLIN/TAZOBACTAM, INJECTION) [Suspect]
     Indication: PSEUDOMONAS INFECTION
     Dosage: INTRAVENOUS DRIP
     Route: 041
  2. TAZOCIN (PIPERACILLIN/TAZOBACTAM, INJECTION) [Suspect]
     Indication: SEPSIS
     Dosage: INTRAVENOUS DRIP
     Route: 041
  3. MODACIN (CEFTAZIDIME) [Suspect]
     Indication: PSEUDOMONAS INFECTION
     Dosage: INTRAVENOUS DRIP
     Route: 041
  4. MODACIN (CEFTAZIDIME) [Suspect]
     Indication: SEPSIS
     Dosage: INTRAVENOUS DRIP
     Route: 041

REACTIONS (3)
  - C-REACTIVE PROTEIN INCREASED [None]
  - DRUG INTERACTION [None]
  - RENAL FAILURE ACUTE [None]
